FAERS Safety Report 7463875-8 (Version None)
Quarter: 2011Q2

REPORT INFORMATION
  Report Type: 
  Country: None (occurrence: None)
  Receive Date: 20110506
  Receipt Date: 20110429
  Transmission Date: 20111010
  Serious: Yes (Other)
  Sender: FDA-Public Use
  Company Number: US-SANOFI-AVENTIS-2011SA027046

PATIENT
  Age: 49 Year
  Sex: Female

DRUGS (3)
  1. NOVOLOG [Concomitant]
     Dosage: 12 TO 18 UNITS 10 MINUTES BEFORE EACH MEAL
  2. INSULIN [Suspect]
     Indication: TYPE 2 DIABETES MELLITUS
     Dates: start: 20100101
  3. LANTUS [Suspect]
     Indication: TYPE 2 DIABETES MELLITUS
     Dosage: DOSE:40 UNIT(S)
     Route: 058
     Dates: start: 20100101

REACTIONS (8)
  - CHILLS [None]
  - PRURITUS [None]
  - LOSS OF CONSCIOUSNESS [None]
  - DEHYDRATION [None]
  - VISION BLURRED [None]
  - FATIGUE [None]
  - BLOOD GLUCOSE INCREASED [None]
  - NIGHT SWEATS [None]
